FAERS Safety Report 11741379 (Version 1)
Quarter: 2015Q4

REPORT INFORMATION
  Report Type: Report from Study
  Country: US (occurrence: US)
  Receive Date: 20151116
  Receipt Date: 20151116
  Transmission Date: 20160304
  Serious: No
  Sender: FDA-Public Use
  Company Number: US-AMGEN-USASL2015118138

PATIENT
  Age: 69 Year
  Sex: Female

DRUGS (1)
  1. ENBREL [Suspect]
     Active Substance: ETANERCEPT
     Indication: RHEUMATOID ARTHRITIS
     Dosage: UNK UNK, UNK
     Route: 065
     Dates: start: 2012

REACTIONS (10)
  - Sciatica [Unknown]
  - Arthralgia [Unknown]
  - Condition aggravated [Unknown]
  - Bursitis [Unknown]
  - Fatigue [Not Recovered/Not Resolved]
  - Spinal pain [Unknown]
  - Peripheral sensory neuropathy [Unknown]
  - Hypercholesterolaemia [Unknown]
  - Upper respiratory tract infection [Unknown]
  - Osteoarthritis [Unknown]

NARRATIVE: CASE EVENT DATE: 20141014
